FAERS Safety Report 5291231-X (Version None)
Quarter: 2007Q2

REPORT INFORMATION
  Report Type: 
  Country: None (occurrence: None)
  Receive Date: 20070409
  Receipt Date: 20070328
  Transmission Date: 20071010
  Serious: Yes (Other)
  Sender: FDA-Public Use
  Company Number: FR-PFIZER INC-2006143822

PATIENT
  Sex: Female
  Weight: 60 kg

DRUGS (1)
  1. LYRICA [Suspect]

REACTIONS (1)
  - TACHYCARDIA [None]
